FAERS Safety Report 10427953 (Version 1)
Quarter: 2014Q3

REPORT INFORMATION
  Report Type: Spontaneous
  Country: US (occurrence: None)
  Receive Date: 20140902
  Receipt Date: 20140902
  Transmission Date: 20150326
  Serious: No
  Sender: FDA-Public Use
  Company Number: None

PATIENT
  Age: 60 Year
  Sex: Male

DRUGS (13)
  1. INSULIN LISPRO [Suspect]
     Active Substance: INSULIN LISPRO
     Indication: HYPERGLYCAEMIA
     Route: 058
     Dates: start: 20140705
  2. TAMSULOSIN [Concomitant]
     Active Substance: TAMSULOSIN
  3. AMLODIPINE [Concomitant]
     Active Substance: AMLODIPINE BESYLATE
  4. CALCIUM CARBONATE. [Concomitant]
     Active Substance: CALCIUM CARBONATE
  5. SODIUM BICARBONATE. [Concomitant]
     Active Substance: SODIUM BICARBONATE
  6. ALLOPURINOL. [Concomitant]
     Active Substance: ALLOPURINOL
  7. ATORVASTATIN [Concomitant]
     Active Substance: ATORVASTATIN
  8. DOCUSATE [Concomitant]
     Active Substance: DOCUSATE
  9. GABAPENTIN. [Concomitant]
     Active Substance: GABAPENTIN
  10. SENNA [Concomitant]
     Active Substance: SENNA LEAF\SENNOSIDES\SENNOSIDES A AND B
  11. CALCITRIOL. [Concomitant]
     Active Substance: CALCITRIOL
  12. CARVEDILOL. [Concomitant]
     Active Substance: CARVEDILOL
  13. CHOLECALCIFEROL [Concomitant]
     Active Substance: CHOLECALCIFEROL

REACTIONS (5)
  - Fall [None]
  - Oedema peripheral [None]
  - Syncope [None]
  - Dyspnoea [None]
  - Treatment noncompliance [None]

NARRATIVE: CASE EVENT DATE: 20140705
